FAERS Safety Report 14324941 (Version 1)
Quarter: 2017Q4

REPORT INFORMATION
  Report Type: Spontaneous
  Country: US (occurrence: US)
  Receive Date: 20171223
  Receipt Date: 20171223
  Transmission Date: 20180321
  Serious: Yes (Other)
  Sender: FDA-Public Use
  Company Number: None

PATIENT
  Age: 20 Year
  Sex: Female
  Weight: 65.25 kg

DRUGS (1)
  1. ZAPZYT ACNE TREATMENT GEL [Suspect]
     Active Substance: BENZOYL PEROXIDE
     Indication: ACNE
     Dates: start: 20171221, end: 20171221

REACTIONS (3)
  - Eye swelling [None]
  - Application site inflammation [None]
  - Urticaria [None]

NARRATIVE: CASE EVENT DATE: 20171221
